FAERS Safety Report 10239938 (Version 2)
Quarter: 2014Q2

REPORT INFORMATION
  Report Type: Spontaneous
  Country: US (occurrence: US)
  Receive Date: 20140616
  Receipt Date: 20140630
  Transmission Date: 20141212
  Serious: No
  Sender: FDA-Public Use
  Company Number: US-GILEAD-2014-0105341

PATIENT
  Sex: Male

DRUGS (4)
  1. LETAIRIS [Suspect]
     Indication: PRODUCT USED FOR UNKNOWN INDICATION
     Dosage: 10 MG, QD
     Route: 065
     Dates: start: 20110525
  2. RIOCIGUAT [Concomitant]
     Route: 065
  3. TYVASO [Concomitant]
     Route: 065
  4. RIOCIGUAT [Concomitant]
     Route: 065

REACTIONS (5)
  - Abdominal distension [Unknown]
  - Diarrhoea [Unknown]
  - Burning sensation [Unknown]
  - Abdominal pain [Unknown]
  - Fatigue [Recovering/Resolving]
